FAERS Safety Report 19609149 (Version 1)
Quarter: 2021Q3

REPORT INFORMATION
  Report Type: Spontaneous
  Country: US (occurrence: US)
  Receive Date: 20210725
  Receipt Date: 20210725
  Transmission Date: 20211014
  Serious: Yes (Other)
  Sender: FDA-Public Use
  Company Number: None

PATIENT
  Age: 77 Year
  Sex: Male
  Weight: 85.5 kg

DRUGS (1)
  1. PYRIDOSTIGMINE BROMIDE 60 MG TAB EYWA [Suspect]
     Active Substance: PYRIDOSTIGMINE BROMIDE
     Indication: DIPLOPIA
     Dosage: ?          QUANTITY:1 TABLET(S);?
     Route: 048
     Dates: start: 20210715

REACTIONS (3)
  - Diplopia [None]
  - Drug ineffective [None]
  - Headache [None]

NARRATIVE: CASE EVENT DATE: 20210715
